FAERS Safety Report 6835697-X (Version None)
Quarter: 2010Q3

REPORT INFORMATION
  Report Type: 
  Country: None (occurrence: None)
  Receive Date: 20100712
  Receipt Date: 20100712
  Transmission Date: 20110219
  Serious: Yes (Hospitalization)
  Sender: FDA-Public Use
  Company Number: None

PATIENT
  Age: 45 Year
  Sex: Female
  Weight: 77.1115 kg

DRUGS (1)
  1. TRILIPIX [Suspect]
     Indication: BLOOD TRIGLYCERIDES
     Dosage: 1/DAY
     Dates: start: 20100524, end: 20100707

REACTIONS (7)
  - ARTHRALGIA [None]
  - FATIGUE [None]
  - NAIL DISCOLOURATION [None]
  - PAIN [None]
  - PYREXIA [None]
  - URTICARIA [None]
  - VOMITING [None]
